FAERS Safety Report 17508252 (Version 1)
Quarter: 2020Q1

REPORT INFORMATION
  Report Type: Report from Study
  Country: None (occurrence: US)
  Receive Date: 20200305
  Receipt Date: 20200305
  Transmission Date: 20200409
  Serious: Yes (Death)
  Sender: FDA-Public Use
  Company Number: US-ABBVIE-20K-163-3269816-00

PATIENT
  Age: 67 Year
  Sex: Female

DRUGS (1)
  1. HUMIRA [Suspect]
     Active Substance: ADALIMUMAB
     Indication: CROHN^S DISEASE
     Route: 058
     Dates: end: 2020

REACTIONS (4)
  - Back pain [Unknown]
  - Hepatic lesion [Not Recovered/Not Resolved]
  - Pain [Unknown]
  - Pancreatic carcinoma [Fatal]

NARRATIVE: CASE EVENT DATE: 201202
